FAERS Safety Report 10496965 (Version 1)
Quarter: 2014Q4

REPORT INFORMATION
  Report Type: Spontaneous
  Country: GB (occurrence: GB)
  Receive Date: 20141006
  Receipt Date: 20141006
  Transmission Date: 20150528
  Serious: Yes (Other)
  Sender: FDA-Public Use
  Company Number: GB-AUROBINDO-AUR-APL-2014-10380

PATIENT
  Age: 20 Year
  Sex: Female

DRUGS (4)
  1. 3TC [Concomitant]
     Active Substance: LAMIVUDINE
     Indication: PROPHYLAXIS
     Dosage: 300 MG, ONCE A DAY
     Route: 048
     Dates: start: 20140311, end: 20140730
  2. NEVIRAPINE 200MG [Suspect]
     Active Substance: NEVIRAPINE
     Indication: PROPHYLAXIS
     Dosage: 200 MG, TWO TIMES A DAY
     Route: 048
     Dates: start: 20140618, end: 20140730
  3. KALETRA [Concomitant]
     Active Substance: LOPINAVIR\RITONAVIR
     Indication: PROPHYLAXIS
     Dosage: UNK, FOUR TIMES/DAY
     Route: 048
     Dates: start: 20140311, end: 20140617
  4. AZT [Concomitant]
     Active Substance: ZIDOVUDINE
     Indication: PROPHYLAXIS
     Dosage: 500 MG, ONCE A DAY
     Route: 048
     Dates: start: 20140311, end: 20140730

REACTIONS (1)
  - Blindness unilateral [Unknown]

NARRATIVE: CASE EVENT DATE: 20140619
